FAERS Safety Report 4326743-6 (Version None)
Quarter: 2004Q1

REPORT INFORMATION
  Report Type: 
  Country: None (occurrence: None)
  Receive Date: 20040322
  Receipt Date: 20031216
  Transmission Date: 20041129
  Serious: No
  Sender: FDA-Public Use
  Company Number: PHEH2003US11473

PATIENT
  Age: 67 Year
  Sex: Male
  Weight: 111.1 kg

DRUGS (5)
  1. ZOMETA [Suspect]
     Indication: BONE DISORDER
     Dates: start: 20031016
  2. LEUPRORELIN (LEUPRORELIN) [Suspect]
     Indication: PROSTATE CANCER
     Dosage: 120 UG IN ONE DAY, SUBCUTANEOUS
     Route: 058
     Dates: start: 20031016
  3. DIURETICS [Concomitant]
  4. DRUGS FOR TREATMENT OF PEPTIC ULCER [Concomitant]
  5. KETOCONAZOLE [Concomitant]

REACTIONS (9)
  - ABNORMAL FAECES [None]
  - APPLICATION SITE REACTION [None]
  - ARTHRALGIA [None]
  - BODY TEMPERATURE INCREASED [None]
  - HYPERHIDROSIS [None]
  - PAIN [None]
  - SKIN ODOUR ABNORMAL [None]
  - TESTICULAR PAIN [None]
  - URINE ODOUR ABNORMAL [None]
